FAERS Safety Report 9812270 (Version 2)
Quarter: 2014Q1

REPORT INFORMATION
  Report Type: Report from Study
  Country: JP (occurrence: JP)
  Receive Date: 20140113
  Receipt Date: 20140306
  Transmission Date: 20141002
  Serious: Yes (Death, Life-Threatening)
  Sender: FDA-Public Use
  Company Number: JP-ROCHE-1331167

PATIENT
  Age: 92 Year
  Sex: Female
  Weight: 46 kg

DRUGS (12)
  1. METHOXY POLYETHYLENE GLYCOL-EPOETIN BETA [Suspect]
     Indication: NEPHROGENIC ANAEMIA
     Route: 058
     Dates: start: 20121115, end: 20130606
  2. NORVASC [Concomitant]
     Route: 048
     Dates: start: 20121115, end: 201310
  3. BLOPRESS [Concomitant]
     Route: 048
     Dates: start: 20121115, end: 201310
  4. PLAVIX [Concomitant]
     Indication: DIABETIC NEPHROPATHY
     Route: 048
     Dates: start: 20121115, end: 201310
  5. GASTER D [Concomitant]
     Indication: DIABETIC NEPHROPATHY
     Route: 048
     Dates: start: 20121115, end: 201310
  6. CARDENALIN [Concomitant]
     Route: 048
     Dates: start: 20121115, end: 201310
  7. ARGAMATE [Concomitant]
     Indication: DIABETIC NEPHROPATHY
     Route: 048
     Dates: start: 20121115, end: 201310
  8. PERSANTIN [Concomitant]
     Indication: DIABETIC NEPHROPATHY
     Route: 048
     Dates: start: 20121115, end: 201310
  9. JUVELA N [Concomitant]
     Route: 048
     Dates: start: 20121115, end: 201310
  10. VOGLIBOSE [Concomitant]
     Route: 048
     Dates: start: 20121115, end: 201310
  11. GLUFAST [Concomitant]
     Route: 048
     Dates: start: 20130114, end: 201310
  12. LASIX [Concomitant]
     Route: 048
     Dates: start: 20130606, end: 201310

REACTIONS (2)
  - Pneumonia [Fatal]
  - Hyperkalaemia [Recovered/Resolved]
